FAERS Safety Report 19735712 (Version 1)
Quarter: 2021Q3

REPORT INFORMATION
  Report Type: Spontaneous
  Country: CN (occurrence: CN)
  Receive Date: 20210823
  Receipt Date: 20210823
  Transmission Date: 20211014
  Serious: Yes (Death, Hospitalization, Other)
  Sender: FDA-Public Use
  Company Number: CN-PFIZER INC-202101046298

PATIENT
  Age: 62 Year
  Sex: Male

DRUGS (2)
  1. FEBUXOSTAT. [Suspect]
     Active Substance: FEBUXOSTAT
     Dosage: UNK, 2X/DAY
  2. CELEBREX [Suspect]
     Active Substance: CELECOXIB
     Indication: GOUT
     Dosage: 400 MG, 2X/DAY
     Dates: start: 20210724, end: 20210802

REACTIONS (5)
  - Death [Fatal]
  - Platelet count decreased [Unknown]
  - Gastrointestinal haemorrhage [Unknown]
  - Haematemesis [Unknown]
  - Off label use [Unknown]

NARRATIVE: CASE EVENT DATE: 20210801
